FAERS Safety Report 4760558-X (Version None)
Quarter: 2005Q3

REPORT INFORMATION
  Report Type: 
  Country: None (occurrence: None)
  Receive Date: 20050826
  Receipt Date: 20050224
  Transmission Date: 20060218
  Serious: Yes (Death, Other)
  Sender: FDA-Public Use
  Company Number: USA-2005-0019066

PATIENT
  Age: 47 Year
  Sex: Female

DRUGS (17)
  1. OXYCONTIN [Suspect]
     Dosage: 10 MG , BID, ORAL
     Route: 048
  2. ERYTHROMYCIN [Suspect]
  3. OXYMORPHONE HYDROCHLORIDE [Suspect]
  4. DIAZEPAM [Suspect]
  5. ETHANOL (ETHANOL) [Suspect]
  6. HUMIBID [Concomitant]
  7. TRAZODONE [Concomitant]
  8. ZITHROMAX [Concomitant]
  9. LOPRESSOR [Concomitant]
  10. ZESTRIL [Concomitant]
  11. PREDNISONE [Concomitant]
  12. ATIVAN [Concomitant]
  13. ZOLOFT [Concomitant]
  14. BUSPAR [Concomitant]
  15. NORVASC [Concomitant]
  16. AMBIEN [Concomitant]
  17. SPIRIVA [Concomitant]

REACTIONS (2)
  - ACCIDENTAL OVERDOSE [None]
  - DROOLING [None]
